APPROVED DRUG PRODUCT: EZETIMIBE
Active Ingredient: EZETIMIBE
Strength: 10MG
Dosage Form/Route: TABLET;ORAL
Application: A211550 | Product #001 | TE Code: AB
Applicant: ACCORD HEALTHCARE INC
Approved: Oct 26, 2018 | RLD: No | RS: No | Type: RX